FAERS Safety Report 24025880 (Version 1)
Quarter: 2024Q2

REPORT INFORMATION
  Report Type: Spontaneous
  Country: US (occurrence: US)
  Receive Date: 20240628
  Receipt Date: 20240628
  Transmission Date: 20240716
  Serious: No
  Sender: FDA-Public Use
  Company Number: US-AUROBINDO-AUR-APL-2023-073848

PATIENT
  Age: 56 Year
  Sex: Male
  Weight: 70.76 kg

DRUGS (2)
  1. AZELASTINE HYDROCHLORIDE [Suspect]
     Active Substance: AZELASTINE HYDROCHLORIDE
     Indication: Hypersensitivity
     Dosage: UNK UNK, TWO TIMES A DAY (TWO SPRAYS IN EACH NOSTRILS)
     Route: 065
     Dates: start: 20231112
  2. CLARITIN [Concomitant]
     Active Substance: LORATADINE
     Indication: Product used for unknown indication
     Dosage: UNK
     Route: 065

REACTIONS (3)
  - Product dose omission issue [Unknown]
  - Device leakage [Unknown]
  - Device defective [Unknown]

NARRATIVE: CASE EVENT DATE: 20231112
